FAERS Safety Report 5815710-9 (Version None)
Quarter: 2008Q3

REPORT INFORMATION
  Report Type: 
  Country: None (occurrence: None)
  Receive Date: 20080721
  Receipt Date: 20080710
  Transmission Date: 20090109
  Serious: Yes (Death, Other)
  Sender: FDA-Public Use
  Company Number: US-ELI_LILLY_AND_COMPANY-US200802004096

PATIENT
  Sex: Male
  Weight: 99.773 kg

DRUGS (7)
  1. ZYPREXA [Suspect]
     Indication: POST-TRAUMATIC STRESS DISORDER
     Dosage: 10 MG, 3/D
     Dates: start: 20040101
  2. ZYPREXA [Suspect]
     Dosage: 10 MG, EACH MORNING
     Dates: start: 20060904
  3. ZYPREXA [Suspect]
     Dosage: 20 MG, EACH EVENING
  4. PEPCID [Concomitant]
     Indication: DYSPEPSIA
     Dosage: 20 MG, AS NEEDED
  5. ABILIFY [Concomitant]
  6. DEPAKOTE [Concomitant]
  7. MOTRIN [Concomitant]

REACTIONS (15)
  - BLOOD PRESSURE INCREASED [None]
  - DEEP VEIN THROMBOSIS [None]
  - DEHYDRATION [None]
  - DRUG INEFFECTIVE [None]
  - DYSPNOEA [None]
  - INCREASED APPETITE [None]
  - OEDEMA [None]
  - OVERDOSE [None]
  - PALPITATIONS [None]
  - PULMONARY EMBOLISM [None]
  - RENAL FAILURE [None]
  - SUDDEN DEATH [None]
  - SWEAT DISCOLOURATION [None]
  - THIRST [None]
  - WEIGHT INCREASED [None]
